FAERS Safety Report 4836344-9 (Version None)
Quarter: 2005Q4

REPORT INFORMATION
  Report Type: 
  Country: None (occurrence: None)
  Receive Date: 20051123
  Receipt Date: 20051109
  Transmission Date: 20060501
  Serious: Yes (Other)
  Sender: FDA-Public Use
  Company Number: TR-ROCHE-424055

PATIENT
  Age: 16 Year
  Sex: Male

DRUGS (2)
  1. ROACCUTANE [Suspect]
     Indication: ACNE CYSTIC
     Dosage: DOSE STEADILY INCREASED TO 70 MG/DAY.
     Route: 065
  2. ROACCUTANE [Suspect]
     Route: 065

REACTIONS (10)
  - ATRIAL TACHYCARDIA [None]
  - BUNDLE BRANCH BLOCK RIGHT [None]
  - CARDIAC DISORDER [None]
  - CHEILITIS [None]
  - CHEST DISCOMFORT [None]
  - DRY EYE [None]
  - DYSPNOEA [None]
  - MITRAL VALVE INCOMPETENCE [None]
  - NAIL DISORDER [None]
  - PALPITATIONS [None]
